FAERS Safety Report 7650247-6 (Version None)
Quarter: 2011Q3

REPORT INFORMATION
  Report Type: 
  Country: None (occurrence: None)
  Receive Date: 20110802
  Receipt Date: 20110624
  Transmission Date: 20111222
  Serious: No
  Sender: FDA-Public Use
  Company Number: US-BAYER-2011-056607

PATIENT
  Age: 86 Year
  Sex: Female

DRUGS (4)
  1. ALEVE (CAPLET) [Suspect]
     Indication: BACK PAIN
     Dosage: 1 DF, BID
     Route: 048
  2. VITAMIN TAB [Concomitant]
     Route: 048
  3. ASPIRIN [Concomitant]
     Route: 048
  4. ANTIHYPERTENSIVES [Concomitant]
     Route: 048

REACTIONS (1)
  - MIDDLE INSOMNIA [None]
